APPROVED DRUG PRODUCT: NATESTO
Active Ingredient: TESTOSTERONE
Strength: 5.5MG/0.122GM ACTUATION
Dosage Form/Route: GEL, METERED;NASAL
Application: N205488 | Product #001
Applicant: ACERUS PHARMACEUTICALS CORP
Approved: May 28, 2014 | RLD: Yes | RS: Yes | Type: RX

PATENTS:
Patent 11744838 | Expires: Mar 17, 2034
Patent 11744838 | Expires: Mar 17, 2034
Patent 11090312 | Expires: Mar 17, 2034